FAERS Safety Report 6054157-X (Version None)
Quarter: 2009Q1

REPORT INFORMATION
  Report Type: 
  Country: None (occurrence: None)
  Receive Date: 20090127
  Receipt Date: 20090120
  Transmission Date: 20090719
  Serious: Yes (Hospitalization, Other)
  Sender: FDA-Public Use
  Company Number: US-PURDUE-USA_2008_0036352

PATIENT
  Age: 55 Year
  Sex: Male
  Weight: 100 kg

DRUGS (21)
  1. OXYCONTIN [Suspect]
     Indication: NEURALGIA
     Dosage: 100 MG, DAILY
     Dates: start: 20060101
  2. METOPROLOL SUCCINATE [Concomitant]
  3. VARENICLINE [Suspect]
     Indication: SMOKING CESSATION THERAPY
     Dosage: .5 MG, BID
     Dates: start: 20070101, end: 20080101
  4. ULTRAM [Suspect]
     Indication: PAIN
  5. MACROBID                           /00024401/ [Suspect]
     Indication: DRUG USE FOR UNKNOWN INDICATION
  6. ALCOHOL                            /00002101/ [Suspect]
     Indication: ALCOHOL ABUSE
  7. NEXIUM                             /01479303/ [Concomitant]
     Dosage: 20 MG, DAILY
  8. SENOKOT [Concomitant]
     Indication: DRUG USE FOR UNKNOWN INDICATION
     Dosage: 1 TABLET, BID
  9. LAXATIVES [Concomitant]
  10. AMBIEN [Concomitant]
     Dosage: 10 MG, DAILY
  11. LORAZEPAM [Concomitant]
     Indication: ANXIETY
     Dosage: 2 MG, Q6H
  12. REGLAN [Concomitant]
     Dosage: 5 MG, Q6H
  13. ACETYLSALICYLIC ACID [Concomitant]
     Dosage: 81 MG, DAILY
  14. COMBIVENT                          /01033501/ [Concomitant]
     Indication: DYSPNOEA
     Dosage: 1 PUFF, Q4H
  15. ETANERCEPT [Concomitant]
     Dosage: 50 MG/ML, WEEKLY
  16. NITROGLYCERIN [Concomitant]
     Dosage: .4 TABLET, PRN
     Route: 060
  17. SALBUTAMOL [Concomitant]
  18. TOPROL-XL [Concomitant]
     Dosage: 100 MG, DAILY
  19. OXYCODONE HCL [Concomitant]
     Indication: NEURALGIA
     Dosage: 10 MG, TID
     Dates: start: 20060101
  20. PROAIR HFA [Concomitant]
     Indication: DYSPNOEA
     Dosage: .01 PUFF, Q4H
     Route: 055
  21. ZONEGRAN [Concomitant]
     Dosage: 100 MG, BID

REACTIONS (31)
  - ALCOHOL ABUSE [None]
  - ANXIETY [None]
  - BALANCE DISORDER [None]
  - CHRONIC OBSTRUCTIVE PULMONARY DISEASE [None]
  - CORONARY ARTERY DISEASE [None]
  - DIZZINESS [None]
  - EMPHYSEMA [None]
  - EYELID DISORDER [None]
  - FEAR [None]
  - FEELING ABNORMAL [None]
  - GASTROOESOPHAGEAL REFLUX DISEASE [None]
  - HYPERHIDROSIS [None]
  - INSOMNIA [None]
  - LOSS OF CONSCIOUSNESS [None]
  - LOWER LIMB FRACTURE [None]
  - MICROCYTIC ANAEMIA [None]
  - MYOCARDIAL INFARCTION [None]
  - NAUSEA [None]
  - NEURALGIA [None]
  - OSTEONECROSIS [None]
  - PACEMAKER GENERATED RHYTHM [None]
  - PAIN [None]
  - PALPITATIONS [None]
  - POST LAMINECTOMY SYNDROME [None]
  - POST PROCEDURAL INFECTION [None]
  - PRESYNCOPE [None]
  - PROSTATE CANCER RECURRENT [None]
  - SEPSIS [None]
  - URINARY TRACT INFECTION [None]
  - URTICARIA [None]
  - WHEEZING [None]
